FAERS Safety Report 4503829-4 (Version None)
Quarter: 2004Q4

REPORT INFORMATION
  Report Type: 
  Country: None (occurrence: None)
  Receive Date: 20041115
  Receipt Date: 20041102
  Transmission Date: 20050328
  Serious: Yes (Other)
  Sender: FDA-Public Use
  Company Number: 2004083748

PATIENT
  Age: 71 Year
  Sex: Male

DRUGS (2)
  1. ATARAX [Suspect]
     Indication: ILL-DEFINED DISORDER
     Dosage: 150 MG (50 MG, 3 IN 1 D)
     Dates: start: 20041025
  2. METOCLOPRAMIDE [Suspect]
     Indication: ILL-DEFINED DISORDER
     Dates: start: 20041026

REACTIONS (5)
  - BLOOD GLUCOSE DECREASED [None]
  - CONVULSION [None]
  - FALL [None]
  - HEPATIC FUNCTION ABNORMAL [None]
  - MUSCULOSKELETAL STIFFNESS [None]
